FAERS Safety Report 13734974 (Version 2)
Quarter: 2017Q3

REPORT INFORMATION
  Report Type: Report from Study
  Country: US (occurrence: US)
  Receive Date: 20170710
  Receipt Date: 20170719
  Transmission Date: 20171127
  Serious: Yes (Other)
  Sender: FDA-Public Use
  Company Number: US-ROCHE-1440076

PATIENT

DRUGS (8)
  1. AZACITIDINE. [Suspect]
     Active Substance: AZACITIDINE
     Indication: OESOPHAGEAL ADENOCARCINOMA
     Dosage: FOR 3 (DL 2) DAYS PRIOR TO EACH 21-DAY CYCLE AND FOR 5 (DL 2) DAYS PRIOR TO EACH 21-DAY CYCLE
     Route: 058
  2. EPIRUBICIN [Suspect]
     Active Substance: EPIRUBICIN
     Indication: OESOPHAGEAL ADENOCARCINOMA
     Route: 042
  3. EPIRUBICIN [Suspect]
     Active Substance: EPIRUBICIN
     Indication: ADENOCARCINOMA GASTRIC
  4. OXALIPLATIN. [Suspect]
     Active Substance: OXALIPLATIN
     Indication: ADENOCARCINOMA GASTRIC
  5. CAPECITABINE. [Suspect]
     Active Substance: CAPECITABINE
     Indication: ADENOCARCINOMA GASTRIC
  6. CAPECITABINE. [Suspect]
     Active Substance: CAPECITABINE
     Indication: OESOPHAGEAL ADENOCARCINOMA
     Dosage: ROUNDED TO THE NEAREST 500 MG FOR A 21-DAY CYCLE. OVER THE 9 WEEK PERIOD.
     Route: 048
  7. OXALIPLATIN. [Suspect]
     Active Substance: OXALIPLATIN
     Indication: OESOPHAGEAL ADENOCARCINOMA
     Dosage: OVER 120 MINUTES EVERY 21 DAYS FOR 3 CYCLES.
     Route: 042
  8. AZACITIDINE. [Suspect]
     Active Substance: AZACITIDINE
     Indication: ADENOCARCINOMA GASTRIC

REACTIONS (8)
  - Leukopenia [Unknown]
  - Fatigue [Unknown]
  - Neutropenia [Unknown]
  - Thrombocytopenia [Unknown]
  - Hyperglycaemia [Unknown]
  - Decreased appetite [Unknown]
  - Nausea [Unknown]
  - Vomiting [Unknown]
